FAERS Safety Report 8921277 (Version 1)
Quarter: 2012Q4

REPORT INFORMATION
  Report Type: Report from Study
  Country: CA (occurrence: CA)
  Receive Date: 20121121
  Receipt Date: 20121121
  Transmission Date: 20130627
  Serious: Yes (Other)
  Sender: FDA-Public Use
  Company Number: CA-ABBOTT-12P-028-1010167-00

PATIENT
  Sex: Male
  Weight: 81.72 kg

DRUGS (2)
  1. HUMIRA PEN [Suspect]
     Indication: CROHN^S DISEASE
     Route: 058
     Dates: start: 20070214, end: 201209
  2. B12 [Concomitant]
     Indication: CROHN^S DISEASE
     Dosage: Every 6 weeks
     Route: 058

REACTIONS (4)
  - Gastrointestinal stenosis [Unknown]
  - Abdominal adhesions [Unknown]
  - Procedural pain [Unknown]
  - Abdominal pain upper [Not Recovered/Not Resolved]
